FAERS Safety Report 11668958 (Version 1)
Quarter: 2015Q4

REPORT INFORMATION
  Report Type: Spontaneous
  Country: US (occurrence: US)
  Receive Date: 20151027
  Receipt Date: 20151027
  Transmission Date: 20160304
  Serious: No
  Sender: FDA-Public Use
  Company Number: US-ELI_LILLY_AND_COMPANY-US200911007301

PATIENT
  Sex: Female

DRUGS (2)
  1. FORTEO [Suspect]
     Active Substance: TERIPARATIDE
     Indication: OSTEOPOROSIS
     Dosage: 20 UG, DAILY (1/D)
     Dates: start: 20090625
  2. FORTEO [Suspect]
     Active Substance: TERIPARATIDE
     Dosage: 20 UG, DAILY (1/D)

REACTIONS (9)
  - Visual acuity reduced [Unknown]
  - Localised infection [Unknown]
  - Vein disorder [Unknown]
  - Peripheral swelling [Unknown]
  - Haemorrhage [Unknown]
  - Impaired healing [Unknown]
  - Hypoaesthesia [Not Recovered/Not Resolved]
  - Limb injury [Recovering/Resolving]
  - Secretion discharge [Unknown]

NARRATIVE: CASE EVENT DATE: 2009
